FAERS Safety Report 18655410 (Version 3)
Quarter: 2022Q2

REPORT INFORMATION
  Report Type: Spontaneous
  Country: BR (occurrence: BR)
  Receive Date: 20201223
  Receipt Date: 20220628
  Transmission Date: 20220720
  Serious: No
  Sender: FDA-Public Use
  Company Number: BR-GSKCCFAMERS-CASE-00929638_AE-54918

PATIENT

DRUGS (2)
  1. AVODART [Suspect]
     Active Substance: DUTASTERIDE
     Indication: Prostatomegaly
     Dosage: UNK
  2. AVODART [Suspect]
     Active Substance: DUTASTERIDE
     Indication: Urine flow decreased

REACTIONS (2)
  - Drug ineffective [Unknown]
  - Product complaint [Unknown]
